FAERS Safety Report 23394769 (Version 1)
Quarter: 2024Q1

REPORT INFORMATION
  Report Type: Other
  Country: IT (occurrence: None)
  Receive Date: 20240112
  Receipt Date: 20240112
  Transmission Date: 20240409
  Serious: Yes (Death, Other)
  Sender: FDA-Public Use
  Company Number: IT-ROCHE-3488618

PATIENT

DRUGS (3)
  1. RITUXIMAB [Suspect]
     Active Substance: RITUXIMAB
     Indication: Diffuse large B-cell lymphoma refractory
     Dosage: DAY 1
     Route: 042
  2. COPANLISIB [Suspect]
     Active Substance: COPANLISIB
     Indication: Diffuse large B-cell lymphoma refractory
     Dosage: DAYS 1,8,15
     Route: 042
  3. BENDAMUSTINE [Suspect]
     Active Substance: BENDAMUSTINE
     Indication: Diffuse large B-cell lymphoma refractory
     Dosage: DAY 1 2
     Route: 042

REACTIONS (8)
  - COVID-19 [Fatal]
  - Neutropenia [Unknown]
  - Infection [Unknown]
  - Gastrointestinal disorder [Unknown]
  - Skin disorder [Unknown]
  - Thrombocytopenia [Unknown]
  - Cytomegalovirus infection reactivation [Unknown]
  - Febrile neutropenia [Unknown]
